FAERS Safety Report 8908582 (Version 2)
Quarter: 2012Q4

REPORT INFORMATION
  Report Type: 
  Country: BR (occurrence: BR)
  Receive Date: 20121114
  Receipt Date: 20121210
  Transmission Date: 20130627
  Serious: Yes (Other)
  Sender: FDA-Public Use
  Company Number: BR-PFIZER INC-2012279738

PATIENT
  Age: 58 Year
  Sex: Female

DRUGS (6)
  1. XALATAN [Suspect]
     Indication: GLAUCOMA
     Dosage: 1 gtt each eye (1x/day)
     Route: 047
     Dates: start: 2012, end: 201210
  2. AZORGA [Concomitant]
     Dosage: UNK
     Dates: start: 201201
  3. METFORMIN HYDROCHLORIDE [Concomitant]
     Dosage: UNK
     Dates: start: 2011
  4. DIAMOX [Concomitant]
     Dosage: UNK
     Dates: start: 201112
  5. ENALAPRIL [Concomitant]
     Dosage: UNK
     Dates: start: 2009
  6. BRIMONIDINE TARTRATE [Concomitant]
     Dosage: UNK
     Dates: start: 201201

REACTIONS (2)
  - Visual impairment [Not Recovered/Not Resolved]
  - Eye irritation [Unknown]
